FAERS Safety Report 5055192-0 (Version None)
Quarter: 2006Q3

REPORT INFORMATION
  Report Type: 
  Country: None (occurrence: None)
  Receive Date: 20060717
  Receipt Date: 20060706
  Transmission Date: 20061208
  Serious: Yes (Hospitalization)
  Sender: FDA-Public Use
  Company Number: 2006-02711

PATIENT
  Age: 27 Year
  Sex: Male

DRUGS (11)
  1. MONODOX [Suspect]
     Indication: HEADACHE
     Dates: start: 20050428, end: 20050501
  2. MONODOX [Suspect]
     Indication: MALAISE
     Dates: start: 20050428, end: 20050501
  3. MONODOX [Suspect]
     Indication: PAIN
     Dates: start: 20050428, end: 20050501
  4. TELITHROMYCIN (TELITHROMYCIN) [Suspect]
     Indication: COUGH
     Dates: start: 20050411, end: 20050415
  5. TELITHROMYCIN (TELITHROMYCIN) [Suspect]
     Indication: HEADACHE
     Dates: start: 20050411, end: 20050415
  6. TELITHROMYCIN (TELITHROMYCIN) [Suspect]
     Indication: MALAISE
     Dates: start: 20050411, end: 20050415
  7. TELITHROMYCIN (TELITHROMYCIN) [Suspect]
     Indication: PAIN
     Dates: start: 20050411, end: 20050415
  8. TELITHROMYCIN (TELITHROMYCIN) [Suspect]
     Indication: PHARYNGOLARYNGEAL PAIN
     Dates: start: 20050411, end: 20050415
  9. TELITHROMYCIN (TELITHROMYCIN) [Suspect]
     Indication: PULMONARY CONGESTION
     Dates: start: 20050411, end: 20050415
  10. TELITHROMYCIN (TELITHROMYCIN) [Suspect]
     Indication: RHINORRHOEA
     Dates: start: 20050411, end: 20050415
  11. METHYLPHENIDATE HCL [Concomitant]

REACTIONS (14)
  - ASCITES [None]
  - COAGULOPATHY [None]
  - DRUG HYPERSENSITIVITY [None]
  - EOSINOPHILIA [None]
  - FLUID RETENTION [None]
  - HEADACHE [None]
  - JAUNDICE [None]
  - LIVER DISORDER [None]
  - MALAISE [None]
  - PAIN [None]
  - PYREXIA [None]
  - SPLENOMEGALY [None]
  - TRANSAMINASES INCREASED [None]
  - WEIGHT INCREASED [None]
